FAERS Safety Report 23431257 (Version 2)
Quarter: 2024Q1

REPORT INFORMATION
  Report Type: Spontaneous
  Country: US (occurrence: US)
  Receive Date: 20240123
  Receipt Date: 20240123
  Transmission Date: 20240410
  Serious: No
  Sender: FDA-Public Use
  Company Number: US-ALCON LABORATORIES-ALC2023US003711

PATIENT
  Age: 85 Year
  Sex: Male

DRUGS (4)
  1. BETADINE [Suspect]
     Active Substance: POVIDONE-IODINE
     Dosage: 1 DROP IN EACH EYE BEFORE AND AFTER SIFOURE SHOT, ONCE A MONTH, LEFT EYE
     Route: 047
     Dates: start: 20230801, end: 20230801
  2. BETADINE [Suspect]
     Active Substance: POVIDONE-IODINE
     Indication: Product used for unknown indication
     Dosage: 1 DROP IN EACH EYE BEFORE AND AFTER SIFOURE SHOT, ONCE A MONTH, RIGHT EYE
     Route: 047
     Dates: start: 202305
  3. PROPARACAINE HYDROCHLORIDE [Suspect]
     Active Substance: PROPARACAINE HYDROCHLORIDE
     Dosage: 1 DROP IN EACH EYE BEFORE AND AFTER SIFOURE SHOT, ONCE A MONTH, LEFT EYE
     Route: 047
     Dates: start: 20230801, end: 20230801
  4. PROPARACAINE HYDROCHLORIDE [Suspect]
     Active Substance: PROPARACAINE HYDROCHLORIDE
     Indication: Anaesthesia eye
     Dosage: 1 DROP IN EACH EYE BEFORE AND AFTER SIFOURE SHOT, ONCE A MONTH, RIGHT EYE
     Route: 047
     Dates: start: 202305

REACTIONS (2)
  - Eye irritation [Recovered/Resolved]
  - Eye pain [Recovered/Resolved]

NARRATIVE: CASE EVENT DATE: 20230727
